FAERS Safety Report 9523446 (Version 1)
Quarter: 2013Q1

REPORT INFORMATION
  Report Type: Spontaneous
  Country: US (occurrence: None)
  Receive Date: 20130305
  Receipt Date: 20130305
  Transmission Date: 20140127
  Serious: Yes (Other)
  Sender: FDA-Public Use
  Company Number: 163-21880-12012722

PATIENT
  Age: 70 Year
  Sex: Female

DRUGS (10)
  1. REVLIMID (LENALIDOMIDE) (CAPSULES) [Suspect]
     Indication: PLASMA CELL MYELOMA
     Dosage: 5 MG, DAILY FOR 21/28, PO
     Route: 048
     Dates: start: 201102, end: 201105
  2. ISOSORBIDE DINITRATE (ISOSORBIDE DINITRATE) (UNKNOWN) [Concomitant]
  3. LEVOTHYROXINE (LEVOTHYROXINE) (UNKNOWN)? [Concomitant]
  4. HYDROCODONE/APAP (VICODIN) (UNKNOWN) [Concomitant]
  5. LOSARTAN (LOSARTAN) (UNKNOWN) [Concomitant]
  6. COLCHICINE (COLCHICINE) (UNKNOWN) [Concomitant]
  7. REGULAR INSULIN (INSULIN) (UNKNOWN) [Concomitant]
  8. ATENOLOL (ATENOLOL) (UNKNOWN) [Concomitant]
  9. ASA (ACETYLSALICYLIC ACID) (UNKNOWN) [Concomitant]
  10. LASIX (FUROSEMIDE) (UNKNOWN) [Concomitant]

REACTIONS (2)
  - Muscle spasms [None]
  - Neutropenia [None]
